FAERS Safety Report 7659176-5 (Version None)
Quarter: 2011Q3

REPORT INFORMATION
  Report Type: 
  Country: None (occurrence: None)
  Receive Date: 20110805
  Receipt Date: 20110728
  Transmission Date: 20111222
  Serious: Yes (Hospitalization)
  Sender: FDA-Public Use
  Company Number: FR-GLAXOSMITHKLINE-B0737158A

PATIENT
  Sex: Male

DRUGS (8)
  1. DUTASTERIDE [Concomitant]
     Dates: start: 20080815
  2. EMEND [Concomitant]
     Dates: start: 20110107
  3. CHLORAMBUCIL [Suspect]
     Indication: CHRONIC LYMPHOCYTIC LEUKAEMIA
     Dosage: 42MG EVERY TWO WEEKS
     Route: 048
     Dates: start: 20110107
  4. PREVISCAN [Concomitant]
     Dates: start: 19950115
  5. TAMSULOSIN HYDROCHLORIDE [Concomitant]
     Dates: start: 20080815
  6. BISOPROLOL FUMARATE [Concomitant]
     Dates: start: 20080815
  7. METFORMIN HCL [Concomitant]
     Dates: start: 20080815
  8. CARDEGIC [Concomitant]
     Dates: start: 20101115

REACTIONS (1)
  - STAPHYLOCOCCAL SEPSIS [None]
